FAERS Safety Report 20335803 (Version 1)
Quarter: 2022Q1

REPORT INFORMATION
  Report Type: Spontaneous
  Country: JP (occurrence: JP)
  Receive Date: 20220114
  Receipt Date: 20220114
  Transmission Date: 20220424
  Serious: Yes (Hospitalization, Other)
  Sender: FDA-Public Use
  Company Number: JP-GLAXOSMITHKLINE-JP2022JPN005163

PATIENT
  Age: 8 Decade
  Sex: Male

DRUGS (1)
  1. VALTREX [Suspect]
     Active Substance: VALACYCLOVIR HYDROCHLORIDE
     Indication: Herpes zoster
     Dosage: UNK

REACTIONS (7)
  - Toxic encephalopathy [Unknown]
  - Dementia [Unknown]
  - Hallucination, visual [Unknown]
  - Cognitive disorder [Unknown]
  - Memory impairment [Unknown]
  - Disorientation [Unknown]
  - Abnormal behaviour [Unknown]
